FAERS Safety Report 25388413 (Version 1)
Quarter: 2025Q2

REPORT INFORMATION
  Report Type: Report from Study
  Country: GR (occurrence: GR)
  Receive Date: 20250603
  Receipt Date: 20250603
  Transmission Date: 20250716
  Serious: Yes (Other)
  Sender: CELLTRION
  Company Number: GR-PFIZER INC-PV202400156940

PATIENT

DRUGS (2)
  1. RITUXIMAB [Suspect]
     Active Substance: RITUXIMAB
     Indication: Myelin oligodendrocyte glycoprotein antibody-associated disease
  2. MYCOPHENOLATE MOFETIL [Concomitant]
     Active Substance: MYCOPHENOLATE MOFETIL
     Indication: Myelin oligodendrocyte glycoprotein antibody-associated disease

REACTIONS (3)
  - Myelin oligodendrocyte glycoprotein antibody-associated disease [Unknown]
  - Disease recurrence [Unknown]
  - Intentional product use issue [Unknown]
